FAERS Safety Report 7252030-2 (Version None)
Quarter: 2011Q1

REPORT INFORMATION
  Report Type: 
  Country: None (occurrence: None)
  Receive Date: 20110128
  Receipt Date: 20100217
  Transmission Date: 20110831
  Serious: No
  Sender: FDA-Public Use
  Company Number: US-ABBOTT-07P-163-0374350-00

PATIENT
  Sex: Female
  Weight: 64.468 kg

DRUGS (4)
  1. PREDNISONE [Concomitant]
     Indication: RHEUMATOID ARTHRITIS
     Route: 048
     Dates: start: 20070131
  2. HUMIRA [Suspect]
     Indication: RHEUMATOID ARTHRITIS
     Route: 058
     Dates: start: 20030101, end: 20030101
  3. HUMIRA [Suspect]
     Dosage: PEN
     Route: 058
     Dates: start: 20070416, end: 20070710
  4. HUMIRA [Suspect]
     Route: 058
     Dates: start: 20070710

REACTIONS (8)
  - INJECTION SITE EXTRAVASATION [None]
  - JOINT SWELLING [None]
  - ARTHRALGIA [None]
  - INCORRECT DOSE ADMINISTERED [None]
  - DRUG INEFFECTIVE [None]
  - INJECTION SITE HAEMATOMA [None]
  - HYPOAESTHESIA [None]
  - INJECTION SITE PAIN [None]
